FAERS Safety Report 6761182-X (Version None)
Quarter: 2010Q2

REPORT INFORMATION
  Report Type: 
  Country: None (occurrence: None)
  Receive Date: 20100608
  Receipt Date: 20100607
  Transmission Date: 20101027
  Serious: Yes (Death, Hospitalization, Disabling)
  Sender: FDA-Public Use
  Company Number: IT-AMGEN-UK278191

PATIENT
  Sex: Female

DRUGS (7)
  1. AMG 706 - BLINDED [Suspect]
     Indication: NON-SMALL CELL LUNG CANCER
     Route: 048
     Dates: start: 20080211, end: 20080423
  2. ARANESP [Suspect]
     Indication: ANAEMIA OF MALIGNANT DISEASE
     Route: 058
     Dates: start: 20080303
  3. CARBOPLATIN [Suspect]
     Route: 042
     Dates: start: 20080211, end: 20080325
  4. PACLITAXEL [Suspect]
     Route: 042
     Dates: start: 20080211, end: 20080325
  5. TRANSTEC [Concomitant]
  6. LANSOPRAZOLE [Concomitant]
  7. PREDNISONE [Concomitant]

REACTIONS (3)
  - DYSPNOEA [None]
  - GENERAL PHYSICAL HEALTH DETERIORATION [None]
  - PULMONARY EMBOLISM [None]
